FAERS Safety Report 21592582 (Version 1)
Quarter: 2022Q4

REPORT INFORMATION
  Report Type: Spontaneous
  Country: None (occurrence: US)
  Receive Date: 20221114
  Receipt Date: 20221114
  Transmission Date: 20230113
  Serious: Yes (Other)
  Sender: FDA-Public Use
  Company Number: US-Genexa Inc. -2134848

PATIENT
  Age: 16 Year
  Sex: Male
  Weight: 84.091 kg

DRUGS (2)
  1. FLU FIX [Suspect]
     Active Substance: HOMEOPATHICS
     Indication: Influenza
     Route: 002
     Dates: start: 20221025, end: 20221026
  2. FLU FIX [Suspect]
     Active Substance: HOMEOPATHICS
     Route: 002
     Dates: start: 20221025, end: 20221026

REACTIONS (1)
  - Infection [Recovered/Resolved]

NARRATIVE: CASE EVENT DATE: 20221025
